FAERS Safety Report 25716043 (Version 2)
Quarter: 2025Q3

REPORT INFORMATION
  Report Type: Spontaneous
  Country: JP (occurrence: JP)
  Receive Date: 20250822
  Receipt Date: 20250905
  Transmission Date: 20251020
  Serious: Yes (Hospitalization, Other)
  Sender: RANBAXY
  Company Number: JP-SUN PHARMACEUTICAL INDUSTRIES LTD-2025R1-523509

PATIENT
  Age: 24 Year
  Sex: Male

DRUGS (2)
  1. LEVOTHYROXINE [Suspect]
     Active Substance: LEVOTHYROXINE
     Indication: Weight control
     Dosage: 150 MICROGRAM, QD
     Route: 065
  2. LIOTHYRONINE [Suspect]
     Active Substance: LIOTHYRONINE
     Indication: Weight control
     Dosage: 300 MICROGRAM, QD
     Route: 065

REACTIONS (4)
  - Asthenia [Unknown]
  - Intentional product misuse [Unknown]
  - Hyperthyroidism [Unknown]
  - Familial periodic paralysis [Unknown]
